FAERS Safety Report 19432426 (Version 1)
Quarter: 2021Q2

REPORT INFORMATION
  Report Type: Spontaneous
  Country: US (occurrence: US)
  Receive Date: 20210617
  Receipt Date: 20210617
  Transmission Date: 20210717
  Serious: Yes (Other)
  Sender: FDA-Public Use
  Company Number: US-FRESENIUS KABI-FK202106068

PATIENT
  Age: 34 Year
  Sex: Female

DRUGS (9)
  1. METHOTREXATE (MANUFACTURER UNKNOWN) [Suspect]
     Active Substance: METHOTREXATE
     Indication: GESTATIONAL TROPHOBLASTIC TUMOUR
     Dosage: 300 MG/M2; DAY 9; PART OF EP/EMA REGIMEN; COMPLETED A TOTAL OF 10 CYCLES OF ADJUVANT CHEMOTHERAPY
     Route: 042
  2. APIXABAN [Concomitant]
     Active Substance: APIXABAN
     Indication: ANTICOAGULANT THERAPY
     Route: 065
  3. CISPLATIN (MANUFACTURER UNKNOWN) [Suspect]
     Active Substance: CISPLATIN
     Indication: GESTATIONAL TROPHOBLASTIC TUMOUR
     Dosage: 75 MG/M2; DAY 1; PART OF EP/EMA REGIMEN
     Route: 042
  4. OXACILLIN [Concomitant]
     Active Substance: OXACILLIN SODIUM
     Indication: PRODUCT USED FOR UNKNOWN INDICATION
     Route: 042
  5. ETOPOSIDE (MANUFACTURER UNKNOWN) [Suspect]
     Active Substance: ETOPOSIDE
     Indication: GESTATIONAL TROPHOBLASTIC TUMOUR
     Dosage: 150 MG/M2; DAY 1; PART OF EP/EMA REGIMEN),
     Route: 042
  6. ETOPOSIDE (MANUFACTURER UNKNOWN) [Suspect]
     Active Substance: ETOPOSIDE
     Dosage: 100 MG/M2; DAY 8; PART OF EP/EMA REGIMEN; COMPLETED A TOTAL OF 10 CYCLES OF ADJUVANT CHEMOTHERAPY
     Route: 042
  7. PEMBROLIZUMAB. [Suspect]
     Active Substance: PEMBROLIZUMAB
     Indication: GESTATIONAL TROPHOBLASTIC TUMOUR
     Dosage: 200 MG; EVERY 3 WEEK START WITH CYCLE 6 OF EP/EMA REGIMEN TILL 10 CYCLE THEN REMAIN ON PEMBROLIZUMAB
     Route: 065
  8. DACTINOMYCIN [Suspect]
     Active Substance: DACTINOMYCIN
     Indication: GESTATIONAL TROPHOBLASTIC TUMOUR
     Dosage: 0.5 MG; DAY 8; PART OF EP/EMA REGIMEN; PATIENT COMPLETED TOTAL OF 10 CYCLES OF ADJUVANT CHEMOTHERAPY
     Route: 042
  9. HEPARIN [Concomitant]
     Active Substance: HEPARIN SODIUM
     Indication: PRODUCT USED FOR UNKNOWN INDICATION
     Route: 042

REACTIONS (3)
  - Tinnitus [Unknown]
  - Thrombocytopenia [Unknown]
  - Ototoxicity [Unknown]
